FAERS Safety Report 6711176-5 (Version None)
Quarter: 2010Q2

REPORT INFORMATION
  Report Type: 
  Country: None (occurrence: None)
  Receive Date: 20100505
  Receipt Date: 20100426
  Transmission Date: 20101027
  Serious: Yes (Other)
  Sender: FDA-Public Use
  Company Number: US-PURDUE-USA-2010-0042320

PATIENT
  Sex: Female

DRUGS (1)
  1. OXYCONTIN [Suspect]
     Indication: DRUG USE FOR UNKNOWN INDICATION
     Dosage: 60 MG, UNK
     Dates: start: 20090801

REACTIONS (7)
  - ANAEMIA [None]
  - DRY MOUTH [None]
  - DYSGEUSIA [None]
  - HEADACHE [None]
  - NAUSEA [None]
  - RASH [None]
  - WEIGHT DECREASED [None]
